FAERS Safety Report 23623539 (Version 3)
Quarter: 2024Q3

REPORT INFORMATION
  Report Type: Spontaneous
  Country: AU (occurrence: AU)
  Receive Date: 20240312
  Receipt Date: 20240722
  Transmission Date: 20241016
  Serious: Yes (Hospitalization, Other)
  Sender: MYLAN
  Company Number: AU-MYLANLABS-2024M1019441

PATIENT
  Sex: Male
  Weight: 97 kg

DRUGS (5)
  1. CLOZARIL [Suspect]
     Active Substance: CLOZAPINE
     Indication: Schizophrenia
     Dosage: UNK
     Route: 048
     Dates: start: 20160630, end: 201607
  2. CLOZARIL [Suspect]
     Active Substance: CLOZAPINE
     Dosage: UNK
     Route: 048
     Dates: start: 20240410
  3. OLANZAPINE [Concomitant]
     Active Substance: OLANZAPINE
     Dosage: 50 MILLIGRAM, QD (DAILY - 20 MG IN THE MORNING, 30 MG AT NIGHT)
     Route: 048
  4. RISPERIDONE [Concomitant]
     Active Substance: RISPERIDONE
     Dosage: 3 MILLIGRAM, QD (ONCE DAILY) AT NIGHT
     Route: 048
  5. LITHIUM [Concomitant]
     Active Substance: LITHIUM
     Dosage: 500 MILLIGRAM, BID (TWICE DAILY)
     Route: 048

REACTIONS (3)
  - Mental impairment [Unknown]
  - Myocarditis [Unknown]
  - Off label use [Unknown]
